FAERS Safety Report 6946249-5 (Version None)
Quarter: 2010Q3

REPORT INFORMATION
  Report Type: 
  Country: None (occurrence: None)
  Receive Date: 20100824
  Receipt Date: 20100817
  Transmission Date: 20110219
  Serious: Yes (Hospitalization, Other)
  Sender: FDA-Public Use
  Company Number: 2010JP003380

PATIENT
  Age: 56 Year
  Sex: Female
  Weight: 72 kg

DRUGS (6)
  1. VESICARE [Suspect]
     Indication: HYPERTONIC BLADDER
     Dosage: 5 MG, UID/QD, ORAL
     Route: 048
     Dates: end: 20100610
  2. AMLODIPINE BESYLATE [Concomitant]
  3. CANDESARTAN CILEXETIL [Concomitant]
  4. PRAVASTATIN [Concomitant]
  5. LANSOPRAZOLE [Concomitant]
  6. ALLEGRA [Concomitant]

REACTIONS (6)
  - BACK PAIN [None]
  - ESCHERICHIA TEST POSITIVE [None]
  - GASTRITIS [None]
  - HEART RATE INCREASED [None]
  - PYELONEPHRITIS [None]
  - RHINITIS ALLERGIC [None]
